FAERS Safety Report 11966790 (Version 3)
Quarter: 2016Q2

REPORT INFORMATION
  Report Type: Spontaneous
  Country: US (occurrence: US)
  Receive Date: 20160127
  Receipt Date: 20160526
  Transmission Date: 20160815
  Serious: Yes (Hospitalization)
  Sender: FDA-Public Use
  Company Number: US-ASTRAZENECA-2016SE05846

PATIENT
  Sex: Female
  Weight: 84.8 kg

DRUGS (48)
  1. ACETAMINOPHEN. [Concomitant]
     Active Substance: ACETAMINOPHEN
     Indication: PYREXIA
     Dosage: 650 MG EVERY 4 HOURS AS REQUIRED
     Route: 048
  2. ACETAMINOPHEN. [Concomitant]
     Active Substance: ACETAMINOPHEN
     Indication: PAIN
     Dosage: 650 MG EVERY 4 HOURS AS REQUIRED
  3. ACETAMINOPHEN. [Concomitant]
     Active Substance: ACETAMINOPHEN
     Indication: PYREXIA
     Dosage: 650 MG EVERY 4 HOURS AS REQUIRED
  4. FENTANYL. [Concomitant]
     Active Substance: FENTANYL
     Indication: PAIN
     Dosage: EITHER 12.5 MCG OR 25 MCG, EVERY 72 HOURS
     Route: 062
     Dates: start: 201510, end: 20151203
  5. GLUCOSE [Concomitant]
     Active Substance: DEXTROSE
     Dosage: 16 G, AS NEEDED
     Route: 048
  6. DOCUSATE SODIUM. [Concomitant]
     Active Substance: DOCUSATE SODIUM
     Route: 048
  7. ROCEPHIN [Concomitant]
     Active Substance: CEFTRIAXONE SODIUM
  8. ZANAFLEX [Concomitant]
     Active Substance: TIZANIDINE HYDROCHLORIDE
     Dosage: 2 MG AS NEEDED
  9. MOVANTIK [Suspect]
     Active Substance: NALOXEGOL OXALATE
     Indication: CONSTIPATION
     Route: 048
     Dates: start: 20151123, end: 20151203
  10. INSULIN [Concomitant]
     Active Substance: INSULIN NOS
     Dosage: 4 UNITS/0.04 ML - 17 UNITS/0.17 ML, EVERY 6 HOURS
     Route: 058
  11. TAZOBACTAM+PIPERACILLIN [Concomitant]
     Dosage: 3.375 G/50 ML, EVERY 6 HOURS
     Route: 042
  12. METOPROLOL TARTRATE. [Concomitant]
     Active Substance: METOPROLOL TARTRATE
     Dosage: 2.5 MG/2.5 ML, EVERY 6 HOURS AS NEEDED
     Route: 042
  13. MIDAZOLAM HYDROCHLORIDE. [Concomitant]
     Active Substance: MIDAZOLAM HYDROCHLORIDE
     Dosage: 1 MG/1 ML, EVERY 5 MINUTES AS NEEDED
     Route: 042
  14. PANTOPRAZOLE [Concomitant]
     Active Substance: PANTOPRAZOLE SODIUM
     Route: 048
  15. MELATONIN [Concomitant]
     Active Substance: MELATONIN
     Route: 048
  16. FAMOTIDINE. [Concomitant]
     Active Substance: FAMOTIDINE
     Dosage: 20 MG/2 ML, EVERY 12 HOURS
     Route: 042
  17. ALBUTEROL SULFATE. [Concomitant]
     Active Substance: ALBUTEROL SULFATE
     Dosage: 2.5 MG/0.5 ML, EVERY 4 TO 6 HOURS AS NEEDED
     Route: 055
  18. FLEET ENEMA [Concomitant]
     Active Substance: SODIUM PHOSPHATE, DIBASIC\SODIUM PHOSPHATE, MONOBASIC
     Indication: CONSTIPATION
     Dosage: 118 ML EVERY THREE DAYS
  19. RIVAROXABAN [Concomitant]
     Active Substance: RIVAROXABAN
     Dosage: 15 MG TWICE A DAY WITH MEALS
     Route: 048
     Dates: start: 20151119
  20. LEVAQUIN [Concomitant]
     Active Substance: LEVOFLOXACIN
     Route: 048
     Dates: start: 20151129
  21. LINEZOLID. [Concomitant]
     Active Substance: LINEZOLID
     Route: 048
  22. MILK OF MAGNESIA [Concomitant]
     Active Substance: MAGNESIUM HYDROXIDE
     Indication: CONSTIPATION
     Dosage: 400 MG/5 ML, 30 ML EVERY DAY
     Route: 048
  23. PROMETHAZINE HYDROCHLORIDE. [Concomitant]
     Active Substance: PROMETHAZINE HYDROCHLORIDE
     Dosage: 12.5 MG/0.5 ML, AS REQUIRED, EVERY 6 TO 8 HOURS
     Route: 042
  24. DEXAMETHASONE. [Concomitant]
     Active Substance: DEXAMETHASONE
  25. OXYGEN. [Concomitant]
     Active Substance: OXYGEN
  26. HEPARIN [Concomitant]
     Active Substance: HEPARIN SODIUM
     Dosage: 5000 UNITS TWO TIMES A DAY
     Route: 058
  27. RIVAROXABAN [Concomitant]
     Active Substance: RIVAROXABAN
     Route: 048
     Dates: start: 20151210
  28. COLACE [Concomitant]
     Active Substance: DOCUSATE SODIUM
     Route: 048
  29. XARELTO [Concomitant]
     Active Substance: RIVAROXABAN
     Indication: ANTICOAGULANT THERAPY
     Dosage: 15 MG TWO TIMES A DAY
     Route: 048
     Dates: start: 20151120
  30. ONDANSETRON HYDROCHLORIDE. [Concomitant]
     Active Substance: ONDANSETRON HYDROCHLORIDE
     Dosage: 4 MG/2 ML, EVERY 6 HOURS AS NEEDED
     Route: 042
  31. HYDROMORPHONE [Concomitant]
     Active Substance: HYDROMORPHONE
     Dosage: 0.2 MG/0.2 ML - 0.4 MG/0.4 ML, EVERY 2 HOURS AS NEEDED
     Route: 042
  32. GLUCAGON. [Concomitant]
     Active Substance: GLUCAGON
     Dosage: 1.0MG AS REQUIRED
     Route: 030
  33. LIPITOR [Concomitant]
     Active Substance: ATORVASTATIN CALCIUM
     Route: 048
  34. HYDROCHLOROTHIAZIDE. [Concomitant]
     Active Substance: HYDROCHLOROTHIAZIDE
  35. MOVANTIK [Suspect]
     Active Substance: NALOXEGOL OXALATE
     Indication: CONSTIPATION
     Route: 048
     Dates: start: 20151211, end: 20151223
  36. ATORVASTATIN [Concomitant]
     Active Substance: ATORVASTATIN
     Route: 048
  37. BISACODYL. [Concomitant]
     Active Substance: BISACODYL
     Indication: CONSTIPATION
  38. DECADRON [Concomitant]
     Active Substance: DEXAMETHASONE
     Route: 048
  39. NORCO [Concomitant]
     Active Substance: ACETAMINOPHEN\HYDROCODONE BITARTRATE
     Indication: PAIN
     Dosage: 5MG-325MG, EVERY 4 HOURS, AS NEEDED
     Route: 048
  40. DEXTROSE. [Concomitant]
     Active Substance: DEXTROSE
     Dosage: 50 50 25 ML - 50 ML, AS NEEDED
     Route: 042
  41. HYDROCODONE [Concomitant]
     Active Substance: HYDROCODONE
     Indication: PAIN
     Dosage: 5/325 MG, ONE EVERY 4 HOURS, AS REQUIRED
     Route: 048
     Dates: start: 201509, end: 20151203
  42. TIZANIDINE. [Concomitant]
     Active Substance: TIZANIDINE
     Dosage: 2 MG TWO TIMES A DAY, AS NEEDED
     Route: 048
  43. DEXTROSE. [Concomitant]
     Active Substance: DEXTROSE
     Dosage: 15 MG AS NEEDED
     Route: 048
  44. ENOXAPARIN [Concomitant]
     Active Substance: ENOXAPARIN
     Dosage: 80 MG/0.8 ML, EVERY 12 HOURS
     Route: 058
  45. ZOFRAN [Concomitant]
     Active Substance: ONDANSETRON HYDROCHLORIDE
     Dosage: AS NEEDED
  46. ACETAMINOPHEN. [Concomitant]
     Active Substance: ACETAMINOPHEN
     Indication: PAIN
     Dosage: 650 MG EVERY 4 HOURS AS REQUIRED
     Route: 048
  47. XARELTO [Concomitant]
     Active Substance: RIVAROXABAN
     Indication: ANTICOAGULANT THERAPY
     Dosage: 20 MG TWO TIMES A DAY
     Route: 048
  48. LACTATED RINGERS [Concomitant]
     Active Substance: CALCIUM CHLORIDE\POTASSIUM CHLORIDE\SODIUM CHLORIDE\SODIUM LACTATE
     Route: 042

REACTIONS (4)
  - Large intestine perforation [Unknown]
  - Anaemia [Unknown]
  - Pelvic abscess [Unknown]
  - Peritonitis [Unknown]
